FAERS Safety Report 20965751 (Version 1)
Quarter: 2022Q2

REPORT INFORMATION
  Report Type: Spontaneous
  Country: CA (occurrence: CA)
  Receive Date: 20220616
  Receipt Date: 20220616
  Transmission Date: 20220721
  Serious: Yes (Other)
  Sender: FDA-Public Use
  Company Number: CA-SAMSUNG BIOEPIS-SB-2022-14503

PATIENT
  Age: 58 Year
  Sex: Male
  Weight: 70 kg

DRUGS (4)
  1. INFLIXIMAB [Suspect]
     Active Substance: INFLIXIMAB
     Indication: Crohn^s disease
     Route: 042
  2. ACETAMINOPHEN [Concomitant]
     Active Substance: ACETAMINOPHEN
     Indication: Premedication
     Route: 065
  3. DESOXIMETASONE [Concomitant]
     Active Substance: DESOXIMETASONE
     Indication: Product used for unknown indication
     Route: 065
  4. PANTOPRAZOLE SODIUM [Concomitant]
     Active Substance: PANTOPRAZOLE SODIUM
     Indication: Product used for unknown indication
     Route: 065

REACTIONS (24)
  - Anxiety [Not Recovered/Not Resolved]
  - Asthenia [Not Recovered/Not Resolved]
  - Blood pressure increased [Not Recovered/Not Resolved]
  - Body temperature decreased [Not Recovered/Not Resolved]
  - Eye movement disorder [Not Recovered/Not Resolved]
  - Flushing [Not Recovered/Not Resolved]
  - Heart rate decreased [Not Recovered/Not Resolved]
  - Hyperhidrosis [Not Recovered/Not Resolved]
  - Hypotension [Not Recovered/Not Resolved]
  - Infusion site extravasation [Recovered/Resolved]
  - Injection site extravasation [Not Recovered/Not Resolved]
  - Malaise [Not Recovered/Not Resolved]
  - Nausea [Not Recovered/Not Resolved]
  - Nervousness [Not Recovered/Not Resolved]
  - Neuralgia [Not Recovered/Not Resolved]
  - Neurogenic shock [Not Recovered/Not Resolved]
  - Pain [Not Recovered/Not Resolved]
  - Poor venous access [Not Recovered/Not Resolved]
  - Weight decreased [Not Recovered/Not Resolved]
  - Weight increased [Not Recovered/Not Resolved]
  - Inappropriate schedule of product administration [Not Recovered/Not Resolved]
  - Incorrect dose administered [Not Recovered/Not Resolved]
  - Intentional product use issue [Not Recovered/Not Resolved]
  - Off label use [Not Recovered/Not Resolved]
